FAERS Safety Report 7793802-5 (Version None)
Quarter: 2011Q4

REPORT INFORMATION
  Report Type: 
  Country: None (occurrence: None)
  Receive Date: 20111003
  Receipt Date: 20110928
  Transmission Date: 20120403
  Serious: Yes (Hospitalization)
  Sender: FDA-Public Use
  Company Number: PHHY2011RU84564

PATIENT
  Age: 48 Year
  Sex: Female

DRUGS (2)
  1. VOLTAREN [Suspect]
     Indication: BACK DISORDER
     Dosage: 37.5 MG, DAILY
     Dates: start: 20110628, end: 20110703
  2. NICOTINIC ACID [Concomitant]
     Indication: BACK DISORDER
     Dosage: UNK UKN, UNK
     Route: 030
     Dates: start: 20110628, end: 20110705

REACTIONS (2)
  - HYPERSENSITIVITY [None]
  - INJECTION SITE ABSCESS [None]
